FAERS Safety Report 13232769 (Version 1)
Quarter: 2017Q1

REPORT INFORMATION
  Report Type: Report from Study
  Country: MW (occurrence: MW)
  Receive Date: 20170214
  Receipt Date: 20170214
  Transmission Date: 20170428
  Serious: Yes (Hospitalization, Other)
  Sender: FDA-Public Use
  Company Number: MW-GILEAD-2017-0257956

PATIENT
  Age: 29 Year
  Sex: Male

DRUGS (2)
  1. EFAVIRENZ/EMTRICITABINE/TENOFOVIR DISOPROXIL FUMARATE [Suspect]
     Active Substance: EFAVIRENZ\EMTRICITABINE\TENOFOVIR DISOPROXIL FUMARATE
     Indication: KAPOSI^S SARCOMA AIDS RELATED
     Dosage: 1 DF, QD
     Route: 048
     Dates: start: 20170202
  2. PACLITAXEL. [Suspect]
     Active Substance: PACLITAXEL
     Indication: KAPOSI^S SARCOMA AIDS RELATED
     Dosage: 182 MG, Q3WK
     Route: 042
     Dates: start: 20170202, end: 20170202

REACTIONS (1)
  - Sepsis [Not Recovered/Not Resolved]

NARRATIVE: CASE EVENT DATE: 20170203
